FAERS Safety Report 18898758 (Version 1)
Quarter: 2021Q1

REPORT INFORMATION
  Report Type: Spontaneous
  Country: US (occurrence: US)
  Receive Date: 20210215
  Receipt Date: 20210215
  Transmission Date: 20210420
  Serious: Yes (Other)
  Sender: FDA-Public Use
  Company Number: None

PATIENT
  Age: 85 Year
  Sex: Female
  Weight: 40.5 kg

DRUGS (14)
  1. EXEMESTANE. [Suspect]
     Active Substance: EXEMESTANE
     Indication: BREAST CANCER FEMALE
     Route: 048
     Dates: start: 20201013, end: 20210212
  2. EVEROLIMUS. [Suspect]
     Active Substance: EVEROLIMUS
     Indication: BREAST CANCER FEMALE
     Route: 048
     Dates: start: 20201013, end: 20210212
  3. ARIMIDEX 1MG [Concomitant]
  4. XGEVA [Concomitant]
     Active Substance: DENOSUMAB
  5. MULTIVITAMIN [Concomitant]
     Active Substance: VITAMINS
  6. MIRTAZAPINE 30MG [Concomitant]
     Active Substance: MIRTAZAPINE
  7. NAMENDA 10MG [Concomitant]
  8. SYNTHROID [Concomitant]
     Active Substance: LEVOTHYROXINE SODIUM
  9. VITAMIN D 25MCG [Concomitant]
  10. NORVASC [Concomitant]
     Active Substance: AMLODIPINE BESYLATE
  11. ASPIRIN 81MG [Concomitant]
     Active Substance: ASPIRIN
  12. PRAVACHOL 20MG [Concomitant]
  13. ARICEPT 10MG [Concomitant]
  14. METOPROLOL TARTRATE 25MG [Concomitant]
     Active Substance: METOPROLOL TARTRATE

REACTIONS (1)
  - Hospice care [None]

NARRATIVE: CASE EVENT DATE: 20210212
